FAERS Safety Report 7555866-3 (Version None)
Quarter: 2011Q2

REPORT INFORMATION
  Report Type: 
  Country: None (occurrence: None)
  Receive Date: 20110618
  Receipt Date: 20110613
  Transmission Date: 20111010
  Serious: Yes (Hospitalization, Other)
  Sender: FDA-Public Use
  Company Number: US-BAYER-201029561NA

PATIENT
  Age: 24 Year
  Sex: Female
  Weight: 56.689 kg

DRUGS (8)
  1. ASCORBIC ACID [Concomitant]
     Dosage: UNK
     Dates: start: 20060101
  2. YAZ [Suspect]
     Dosage: UNK
     Dates: start: 20070101, end: 20090101
  3. AMNESTEEM [Concomitant]
     Indication: ACNE
     Dosage: UNK
     Dates: start: 20040101, end: 20050101
  4. NSAID'S [Concomitant]
     Dosage: UNK UNK, PRN
  5. ZOLOFT [Concomitant]
     Indication: DEPRESSION
     Dosage: UNK
     Dates: start: 20070101
  6. ANTIBIOTICS [Concomitant]
  7. UTIRA [Concomitant]
     Dosage: UNK
     Dates: start: 20090101
  8. YAZ [Suspect]
     Indication: CONTRACEPTION
     Dosage: UNK
     Route: 048
     Dates: start: 20070301, end: 20071101

REACTIONS (3)
  - ABDOMINAL PAIN [None]
  - GALLBLADDER DISORDER [None]
  - BACK PAIN [None]
